FAERS Safety Report 18120842 (Version 2)
Quarter: 2021Q1

REPORT INFORMATION
  Report Type: Spontaneous
  Country: US (occurrence: US)
  Receive Date: 20200806
  Receipt Date: 20210325
  Transmission Date: 20210419
  Serious: Yes (Other)
  Sender: FDA-Public Use
  Company Number: US-ASTRAZENECA-2020SE97543

PATIENT
  Age: 17679 Day
  Sex: Female
  Weight: 64 kg

DRUGS (64)
  1. PRILOSEC [Suspect]
     Active Substance: OMEPRAZOLE MAGNESIUM
     Indication: GASTROOESOPHAGEAL REFLUX DISEASE
     Route: 048
     Dates: start: 200001, end: 201812
  2. PREVACID [Suspect]
     Active Substance: LANSOPRAZOLE
     Indication: GASTROOESOPHAGEAL REFLUX DISEASE
     Route: 065
     Dates: start: 200001, end: 201812
  3. NAPROXEN. [Concomitant]
     Active Substance: NAPROXEN
     Indication: ANALGESIC THERAPY
     Dates: start: 20131030
  4. FLUVOXAMINE [Concomitant]
     Active Substance: FLUVOXAMINE
  5. LAMOTRIGINE. [Concomitant]
     Active Substance: LAMOTRIGINE
  6. ENALAPRIL [Concomitant]
     Active Substance: ENALAPRIL
  7. LAMOTRIGINE. [Concomitant]
     Active Substance: LAMOTRIGINE
  8. TAZOBACTAM [Concomitant]
     Active Substance: TAZOBACTAM
  9. PIPERACILLIN. [Concomitant]
     Active Substance: PIPERACILLIN SODIUM
  10. CRESTOR [Concomitant]
     Active Substance: ROSUVASTATIN CALCIUM
     Indication: BLOOD CHOLESTEROL
     Dates: start: 20131029
  11. OXYCODONE [Concomitant]
     Active Substance: OXYCODONE
  12. SUMATRIPTAN. [Concomitant]
     Active Substance: SUMATRIPTAN
  13. CETIRIZINE [Concomitant]
     Active Substance: CETIRIZINE HYDROCHLORIDE
  14. FENOFIBRATE. [Concomitant]
     Active Substance: FENOFIBRATE
  15. FIORICET [Concomitant]
     Active Substance: ACETAMINOPHEN\BUTALBITAL\CAFFEINE
  16. LUVOX [Concomitant]
     Active Substance: FLUVOXAMINE MALEATE
  17. PROZAC [Concomitant]
     Active Substance: FLUOXETINE HYDROCHLORIDE
     Indication: ANTIDEPRESSANT THERAPY
     Dates: start: 20170127
  18. METHYLPREDNISOLONE. [Concomitant]
     Active Substance: METHYLPREDNISOLONE
  19. NEURONTIN [Concomitant]
     Active Substance: GABAPENTIN
  20. ZOFRAN [Concomitant]
     Active Substance: ONDANSETRON HYDROCHLORIDE
  21. LAMICTAL [Concomitant]
     Active Substance: LAMOTRIGINE
  22. METHADONE [Concomitant]
     Active Substance: METHADONE HYDROCHLORIDE
  23. TOPIRAMATE. [Concomitant]
     Active Substance: TOPIRAMATE
  24. LOVENOX [Concomitant]
     Active Substance: ENOXAPARIN SODIUM
  25. LOMOTIL [Concomitant]
     Active Substance: ATROPINE SULFATE\DIPHENOXYLATE HYDROCHLORIDE
  26. SEROQUEL [Concomitant]
     Active Substance: QUETIAPINE FUMARATE
  27. CODEINE SULFATE. [Concomitant]
     Active Substance: CODEINE SULFATE
  28. PRILOSEC [Suspect]
     Active Substance: OMEPRAZOLE MAGNESIUM
     Indication: GASTROOESOPHAGEAL REFLUX DISEASE
     Route: 048
     Dates: start: 2000, end: 2018
  29. PROTONIX [Suspect]
     Active Substance: PANTOPRAZOLE SODIUM
     Indication: GASTROOESOPHAGEAL REFLUX DISEASE
     Route: 065
     Dates: start: 200001, end: 201812
  30. PROTONIX [Suspect]
     Active Substance: PANTOPRAZOLE SODIUM
     Indication: GASTROOESOPHAGEAL REFLUX DISEASE
     Route: 065
  31. PANTOPRAZOLE [Suspect]
     Active Substance: PANTOPRAZOLE
     Indication: GASTROOESOPHAGEAL REFLUX DISEASE
     Route: 065
  32. FLUOXETINE [Concomitant]
     Active Substance: FLUOXETINE HYDROCHLORIDE
     Indication: ANTIDEPRESSANT THERAPY
     Dates: start: 20170127
  33. ROLAIDS [Concomitant]
     Active Substance: CALCIUM CARBONATE\MAGNESIUM HYDROXIDE
  34. GABAPENTIN. [Concomitant]
     Active Substance: GABAPENTIN
  35. ALPRAZOLAM. [Concomitant]
     Active Substance: ALPRAZOLAM
  36. ONDANSETRON [Concomitant]
     Active Substance: ONDANSETRON
  37. PAZEADIN [Concomitant]
  38. XANAX [Concomitant]
     Active Substance: ALPRAZOLAM
  39. PREVACID [Suspect]
     Active Substance: LANSOPRAZOLE
     Indication: GASTROOESOPHAGEAL REFLUX DISEASE
     Route: 065
     Dates: start: 2000, end: 2018
  40. PANTOPRAZOLE [Suspect]
     Active Substance: PANTOPRAZOLE
     Indication: GASTROOESOPHAGEAL REFLUX DISEASE
     Route: 065
     Dates: start: 200001, end: 201812
  41. RANITIDINE. [Concomitant]
     Active Substance: RANITIDINE
     Dates: start: 20170724
  42. SAPHRIS [Concomitant]
     Active Substance: ASENAPINE MALEATE
  43. DICYCLOMINE [Concomitant]
     Active Substance: DICYCLOMINE HYDROCHLORIDE
  44. ADVAIR HFA [Concomitant]
     Active Substance: FLUTICASONE PROPIONATE\SALMETEROL XINAFOATE
  45. NORTRIPTYLINE [Concomitant]
     Active Substance: NORTRIPTYLINE
  46. LEVOPHED [Concomitant]
     Active Substance: NOREPINEPHRINE BITARTRATE
  47. NEXIUM [Suspect]
     Active Substance: ESOMEPRAZOLE MAGNESIUM
     Indication: GASTROOESOPHAGEAL REFLUX DISEASE
     Route: 048
     Dates: start: 2001, end: 2016
  48. ENALAPRIL [Concomitant]
     Active Substance: ENALAPRIL
     Indication: HYPERTENSION
     Dates: start: 20170127
  49. IBUPROFEN. [Concomitant]
     Active Substance: IBUPROFEN
     Dates: start: 20131029
  50. NASONEX [Concomitant]
     Active Substance: MOMETASONE FUROATE
  51. CARISOPRODOL. [Concomitant]
     Active Substance: CARISOPRODOL
  52. CYCLOBENZAPRINE. [Concomitant]
     Active Substance: CYCLOBENZAPRINE
  53. VITAMIN D [Concomitant]
     Active Substance: VITAMIN D NOS
  54. ATORVASTATIN [Concomitant]
     Active Substance: ATORVASTATIN
  55. ROSUVASTATIN. [Concomitant]
     Active Substance: ROSUVASTATIN
  56. ENALAPRIL [Concomitant]
     Active Substance: ENALAPRIL
  57. NEXIUM [Suspect]
     Active Substance: ESOMEPRAZOLE MAGNESIUM
     Indication: GASTROOESOPHAGEAL REFLUX DISEASE
     Route: 048
     Dates: start: 200001, end: 201812
  58. TUMS [Concomitant]
     Active Substance: CALCIUM CARBONATE
  59. ALENDRONATE [Concomitant]
     Active Substance: ALENDRONATE SODIUM
  60. QUETIAPINE. [Concomitant]
     Active Substance: QUETIAPINE
  61. FOSAMAX [Concomitant]
     Active Substance: ALENDRONATE SODIUM
  62. SALINE [Concomitant]
     Active Substance: SODIUM CHLORIDE
  63. BUTALBITAL [Concomitant]
     Active Substance: BUTALBITAL
  64. BENTYL [Concomitant]
     Active Substance: DICYCLOMINE HYDROCHLORIDE

REACTIONS (6)
  - Acute kidney injury [Not Recovered/Not Resolved]
  - Chronic kidney disease-mineral and bone disorder [Unknown]
  - Renal failure [Unknown]
  - Gastrooesophageal reflux disease [Not Recovered/Not Resolved]
  - Nephrogenic anaemia [Unknown]
  - Chronic kidney disease [Not Recovered/Not Resolved]

NARRATIVE: CASE EVENT DATE: 20121018
